FAERS Safety Report 6739589-6 (Version None)
Quarter: 2010Q2

REPORT INFORMATION
  Report Type: 
  Country: None (occurrence: None)
  Receive Date: 20100525
  Receipt Date: 20100512
  Transmission Date: 20101027
  Serious: Yes (Life-Threatening, Other)
  Sender: FDA-Public Use
  Company Number: NL-GENZYME-CLOF-1000940

PATIENT
  Sex: Female
  Weight: 92 kg

DRUGS (22)
  1. EVOLTRA [Suspect]
     Indication: ACUTE MYELOID LEUKAEMIA
     Dosage: 21 MG, QDX5
     Route: 042
     Dates: start: 20100407, end: 20100411
  2. CYTARABINE [Suspect]
     Indication: ACUTE MYELOID LEUKAEMIA
     Dosage: 420 MG, QD
     Route: 042
     Dates: start: 20100407, end: 20100413
  3. IDARUBICIN HCL [Suspect]
     Indication: ACUTE MYELOID LEUKAEMIA
     Dosage: 25 MG, QDX3
     Route: 042
     Dates: start: 20100407, end: 20100409
  4. ZOVIRAX [Concomitant]
     Indication: DRUG USE FOR UNKNOWN INDICATION
     Dosage: 450 MG, UNK
     Route: 042
  5. CANCIDAS [Concomitant]
     Indication: DRUG USE FOR UNKNOWN INDICATION
     Dosage: 50 MG, ONCE
     Route: 042
  6. NEXIUM [Concomitant]
     Indication: DRUG USE FOR UNKNOWN INDICATION
     Dosage: 40 MG, ONCE
     Route: 042
  7. POTASSIUM CHLORIDE [Concomitant]
     Indication: DRUG USE FOR UNKNOWN INDICATION
     Dosage: 60 MMOL, UNK
     Route: 065
  8. DAKTARIN [Concomitant]
     Indication: DRUG USE FOR UNKNOWN INDICATION
     Dosage: 10 MG, UNK
     Route: 061
  9. SODIUM CHLORIDE [Concomitant]
     Indication: DRUG USE FOR UNKNOWN INDICATION
     Dosage: 50 ML, UNK
     Route: 065
  10. FRAXIPARINE [Concomitant]
     Indication: DRUG USE FOR UNKNOWN INDICATION
     Dosage: 2850 IU, ONCE
     Route: 058
  11. PARACETAMOL [Concomitant]
     Indication: DRUG USE FOR UNKNOWN INDICATION
     Dosage: 1000 MG, UNK
     Route: 054
  12. VENTOLIN [Concomitant]
     Indication: DRUG USE FOR UNKNOWN INDICATION
     Dosage: UNK ML, UNK
     Route: 065
  13. FLUIMUCIL [Concomitant]
     Indication: DRUG USE FOR UNKNOWN INDICATION
     Dosage: 5 ML, UNK
     Route: 065
  14. METHYLPREDNISOLONE ACETATE [Concomitant]
     Indication: DRUG USE FOR UNKNOWN INDICATION
     Dosage: 1000 MG, UNK
     Route: 065
  15. TARGOCID [Concomitant]
     Indication: DRUG USE FOR UNKNOWN INDICATION
     Dosage: 400 MG, ONCE
     Route: 042
  16. CIPROFLOXACIN [Concomitant]
     Indication: DRUG USE FOR UNKNOWN INDICATION
     Dosage: UNK UNK, UNK
     Route: 065
  17. FENTANYL [Concomitant]
     Indication: DRUG USE FOR UNKNOWN INDICATION
     Dosage: UNK UNK, UNK
     Route: 062
  18. BACTRIMEL [Concomitant]
     Indication: DRUG USE FOR UNKNOWN INDICATION
     Dosage: UNK UNK, UNK
     Route: 065
  19. FLUCONAZOLE [Concomitant]
     Indication: DRUG USE FOR UNKNOWN INDICATION
     Dosage: UNK UNK, UNK
     Route: 065
  20. PERFALGAN [Concomitant]
     Indication: DRUG USE FOR UNKNOWN INDICATION
     Dosage: UNK UNK, UNK
     Route: 065
  21. FUROSEMIDE [Concomitant]
     Indication: DRUG USE FOR UNKNOWN INDICATION
     Dosage: UNK UNK, UNK
     Route: 065
  22. LOPERAMIDE [Concomitant]
     Indication: DRUG USE FOR UNKNOWN INDICATION
     Dosage: UNK UNK, UNK

REACTIONS (5)
  - BLOOD CREATININE INCREASED [None]
  - HYPERKALAEMIA [None]
  - PALMAR-PLANTAR ERYTHRODYSAESTHESIA SYNDROME [None]
  - PANCYTOPENIA [None]
  - RESPIRATORY FAILURE [None]
